FAERS Safety Report 7756508-4 (Version None)
Quarter: 2011Q3

REPORT INFORMATION
  Report Type: 
  Country: None (occurrence: None)
  Receive Date: 20110916
  Receipt Date: 20110906
  Transmission Date: 20111222
  Serious: Yes (Hospitalization, Other)
  Sender: FDA-Public Use
  Company Number: US-ELI_LILLY_AND_COMPANY-US201109001941

PATIENT
  Sex: Female

DRUGS (6)
  1. FORTEO [Suspect]
     Indication: OSTEOPOROSIS
     Dosage: 20 UG, QD
     Route: 065
     Dates: start: 20090101
  2. SYNTHROID [Concomitant]
  3. BENICAR [Concomitant]
  4. FORTEO [Suspect]
     Dosage: 20 UG, QD
     Route: 065
  5. ASPIRIN [Concomitant]
  6. TOPROL-XL [Concomitant]

REACTIONS (3)
  - PELVIC FRACTURE [None]
  - FALL [None]
  - BLOOD PRESSURE DECREASED [None]
